FAERS Safety Report 7065252-0 (Version None)
Quarter: 2010Q4

REPORT INFORMATION
  Report Type: 
  Country: None (occurrence: None)
  Receive Date: 20101027
  Receipt Date: 20101019
  Transmission Date: 20110411
  Serious: Yes (Hospitalization)
  Sender: FDA-Public Use
  Company Number: FR-KINGPHARMUSA00001-K201001294

PATIENT
  Age: 96 Year
  Sex: Female

DRUGS (7)
  1. ALTACE [Suspect]
     Dosage: 5 MG, QD
     Route: 048
     Dates: end: 20100828
  2. LASIX [Suspect]
     Dosage: 500 MG, QD
     Route: 048
     Dates: end: 20100828
  3. HEMIGOXINE NATIVELLE [Suspect]
     Indication: ATRIAL FIBRILLATION
     Dosage: 0.125 MG, QD
     Route: 048
     Dates: end: 20100828
  4. MEMANTINE HCL [Concomitant]
     Dosage: UNK
     Dates: start: 20090901
  5. DIFFU K [Concomitant]
     Dosage: UNK
     Dates: end: 20100828
  6. ZOLOFT [Concomitant]
     Dosage: UNK
     Dates: end: 20100828
  7. PREVISCAN [Concomitant]
     Dosage: UNK
     Dates: end: 20100828

REACTIONS (11)
  - ABDOMINAL PAIN [None]
  - BLOOD CREATININE INCREASED [None]
  - BRADYCARDIA [None]
  - DEHYDRATION [None]
  - DIARRHOEA [None]
  - FAECES DISCOLOURED [None]
  - GENERAL PHYSICAL HEALTH DETERIORATION [None]
  - LIVEDO RETICULARIS [None]
  - RENAL FAILURE [None]
  - TACHYPNOEA [None]
  - THERAPEUTIC AGENT TOXICITY [None]
